FAERS Safety Report 20150109 (Version 2)
Quarter: 2022Q1

REPORT INFORMATION
  Report Type: Report from Study
  Country: US (occurrence: US)
  Receive Date: 20211206
  Receipt Date: 20220103
  Transmission Date: 20220424
  Serious: Yes (Other)
  Sender: FDA-Public Use
  Company Number: US-ABBVIE-21K-163-4183963-00

PATIENT
  Sex: Female

DRUGS (4)
  1. HUMIRA [Suspect]
     Active Substance: ADALIMUMAB
     Indication: Uveitis
     Route: 058
  2. HUMIRA [Suspect]
     Active Substance: ADALIMUMAB
     Route: 058
  3. MODERNA COVID-19 VACCINE [Suspect]
     Active Substance: ELASOMERAN
     Indication: COVID-19 immunisation
     Route: 030
     Dates: start: 20210419, end: 20210419
  4. MODERNA COVID-19 VACCINE [Suspect]
     Active Substance: ELASOMERAN
     Route: 030
     Dates: start: 20210521, end: 20210521

REACTIONS (9)
  - Blindness [Unknown]
  - Eyelid ptosis [Unknown]
  - Nervous system disorder [Not Recovered/Not Resolved]
  - Vaccination site hyperaesthesia [Unknown]
  - Cough [Unknown]
  - Stress [Unknown]
  - Uveitis [Not Recovered/Not Resolved]
  - Arthralgia [Unknown]
  - Pain [Unknown]
